FAERS Safety Report 6305641-2 (Version None)
Quarter: 2009Q3

REPORT INFORMATION
  Report Type: 
  Country: None (occurrence: None)
  Receive Date: 20090806
  Receipt Date: 20090723
  Transmission Date: 20100115
  Serious: Yes (Death, Hospitalization)
  Sender: FDA-Public Use
  Company Number: 8049530

PATIENT
  Age: 82 Year
  Sex: Female

DRUGS (3)
  1. PREDNISOLONE [Suspect]
     Dosage: 40 MG /D
  2. MELPHALAN HYDROCHLORIDE [Concomitant]
  3. ALENDRONATE SODIUM [Concomitant]

REACTIONS (5)
  - BLOOD IMMUNOGLOBULIN M ABNORMAL [None]
  - BONE MARROW DISORDER [None]
  - DISORIENTATION [None]
  - HYPERAMMONAEMIA [None]
  - KARYOTYPE ANALYSIS ABNORMAL [None]
